FAERS Safety Report 24920481 (Version 1)
Quarter: 2025Q1

REPORT INFORMATION
  Report Type: Spontaneous
  Country: US (occurrence: US)
  Receive Date: 20250204
  Receipt Date: 20250204
  Transmission Date: 20250409
  Serious: No
  Sender: TARO
  Company Number: US-TARO PHARMACEUTICALS USA INC.-2024TAR02563

PATIENT

DRUGS (2)
  1. ADAPALENE [Suspect]
     Active Substance: ADAPALENE
     Indication: Acne
     Dosage: UNK UNK, DAILY, PEA SIZE
     Route: 061
     Dates: start: 202408
  2. ADAPALENE [Suspect]
     Active Substance: ADAPALENE
     Dosage: UNK, 2-3 TIMES PER WEEK, PEA SIZE
     Route: 061
     Dates: start: 202408

REACTIONS (3)
  - Skin exfoliation [Recovering/Resolving]
  - Drug ineffective [Unknown]
  - Dry skin [Recovering/Resolving]

NARRATIVE: CASE EVENT DATE: 20240101
